FAERS Safety Report 9233439 (Version 1)
Quarter: 2013Q2

REPORT INFORMATION
  Report Type: Spontaneous
  Country: SE (occurrence: SE)
  Receive Date: 20130416
  Receipt Date: 20130416
  Transmission Date: 20140414
  Serious: Yes (Other)
  Sender: FDA-Public Use
  Company Number: SE-PFIZER INC-2013115370

PATIENT
  Age: 29 Year
  Sex: Female

DRUGS (2)
  1. LYRICA [Suspect]
     Dosage: LOW DOSE
     Dates: start: 20130206
  2. LYRICA [Suspect]
     Dosage: 225 MG/DAY
     Dates: end: 20130306

REACTIONS (5)
  - Drug withdrawal convulsions [Unknown]
  - Joint swelling [Recovered/Resolved]
  - Personality change [Recovered/Resolved]
  - Muscle spasms [Not Recovered/Not Resolved]
  - Visual impairment [Unknown]
